FAERS Safety Report 9365805 (Version 2)
Quarter: 2013Q3

REPORT INFORMATION
  Report Type: Spontaneous
  Country: NO (occurrence: NO)
  Receive Date: 20130625
  Receipt Date: 20130710
  Transmission Date: 20140515
  Serious: Yes (Death, Hospitalization, Other)
  Sender: FDA-Public Use
  Company Number: PHHY2013NO064272

PATIENT
  Age: 60 Year
  Sex: Male

DRUGS (7)
  1. CERTICAN [Suspect]
     Indication: HEART TRANSPLANT
     Dosage: 2.25 MG, (1 MG IN MORNING AND 1.25 MG IN EVENING)
     Route: 048
     Dates: start: 20060608
  2. CERTICAN [Suspect]
     Dosage: 0.5 MG, BID
  3. PREDNISOLON [Concomitant]
     Dosage: 7.5 MG, UNK
     Route: 048
     Dates: start: 20051227
  4. CELLCEPT [Concomitant]
     Dosage: 500 MG, UNK
     Route: 048
     Dates: start: 20051227
  5. SELO-ZOK [Concomitant]
     Dosage: 100 MG, UNK
     Route: 048
  6. LIPITOR [Concomitant]
     Dosage: 40 MG, UNK
     Route: 048
  7. IMMUNOSUPPRESSANTS [Concomitant]

REACTIONS (7)
  - Renal failure acute [Fatal]
  - Urine output decreased [Fatal]
  - Lung infection [Fatal]
  - Multi-organ failure [Fatal]
  - Legionella infection [Fatal]
  - Pyrexia [Fatal]
  - Drug administration error [Unknown]
